FAERS Safety Report 17374718 (Version 1)
Quarter: 2020Q1

REPORT INFORMATION
  Report Type: Spontaneous
  Country: US (occurrence: US)
  Receive Date: 20200205
  Receipt Date: 20200205
  Transmission Date: 20200409
  Serious: No
  Sender: FDA-Public Use
  Company Number: US-PFIZER INC-2020048814

PATIENT
  Age: 17 Year
  Sex: Female
  Weight: 63.49 kg

DRUGS (4)
  1. SPIRONOLACTONE. [Suspect]
     Active Substance: SPIRONOLACTONE
     Indication: FLUID RETENTION
  2. SPIRONOLACTONE. [Suspect]
     Active Substance: SPIRONOLACTONE
     Indication: HYPOKALAEMIA
     Dosage: 50 MG, 1X/DAY
     Route: 048
     Dates: start: 20200107, end: 20200113
  3. KORLYM [Suspect]
     Active Substance: MIFEPRISTONE
     Indication: CUSHING^S SYNDROME
     Dosage: 300 MG, 1X/DAY
     Route: 048
     Dates: start: 20200103, end: 202001
  4. KORLYM [Suspect]
     Active Substance: MIFEPRISTONE
     Dosage: 300 MG, 1X/DAY
     Route: 048
     Dates: start: 20200113

REACTIONS (2)
  - Product administered to patient of inappropriate age [Unknown]
  - Rash [Unknown]

NARRATIVE: CASE EVENT DATE: 20200111
